FAERS Safety Report 17983412 (Version 3)
Quarter: 2020Q3

REPORT INFORMATION
  Report Type: Report from Study
  Country: CA (occurrence: CA)
  Receive Date: 20200706
  Receipt Date: 20200818
  Transmission Date: 20201103
  Serious: Yes (Other)
  Sender: FDA-Public Use
  Company Number: CA-JNJFOC-20200526556

PATIENT
  Age: 15 Year
  Sex: Male
  Weight: 62 kg

DRUGS (2)
  1. REMICADE [Suspect]
     Active Substance: INFLIXIMAB
     Indication: COLITIS ULCERATIVE
     Route: 042
     Dates: start: 20200124, end: 20200806
  2. REMICADE [Suspect]
     Active Substance: INFLIXIMAB
     Dosage: RELOADING AT 5 MG/KG AT WEEK 0, THEN 4 THEN BACK TO 5 MG/KG EVERY 8 WEEKS
     Route: 042

REACTIONS (1)
  - Colitis ulcerative [Not Recovered/Not Resolved]

NARRATIVE: CASE EVENT DATE: 20200517
